FAERS Safety Report 12302692 (Version 1)
Quarter: 2016Q2

REPORT INFORMATION
  Report Type: Spontaneous
  Country: US (occurrence: US)
  Receive Date: 20160425
  Receipt Date: 20160425
  Transmission Date: 20160815
  Serious: No
  Sender: FDA-Public Use
  Company Number: US-SA-2016SA048389

PATIENT
  Sex: Male
  Weight: 131.54 kg

DRUGS (3)
  1. LOVENOX [Suspect]
     Active Substance: ENOXAPARIN SODIUM
     Indication: THROMBOSIS PROPHYLAXIS
     Dosage: 0.3 MG SHOT IN ABDOMEN, TWICE A DAY FOR TWO MONTHS AND ONE WEEK
     Route: 065
     Dates: start: 201601, end: 20160302
  2. LOVENOX [Suspect]
     Active Substance: ENOXAPARIN SODIUM
     Indication: DEEP VEIN THROMBOSIS
     Dosage: 0.3 MG SHOT IN ABDOMEN, TWICE A DAY FOR TWO MONTHS AND ONE WEEK
     Route: 065
     Dates: start: 201601, end: 20160302
  3. DEPAKOTE [Concomitant]
     Active Substance: DIVALPROEX SODIUM
     Route: 065

REACTIONS (2)
  - Penile pain [Not Recovered/Not Resolved]
  - Blood urine present [Not Recovered/Not Resolved]
